FAERS Safety Report 9712860 (Version 1)
Quarter: 2013Q4

REPORT INFORMATION
  Report Type: Spontaneous
  Country: US (occurrence: US)
  Receive Date: 20131126
  Receipt Date: 20131126
  Transmission Date: 20140711
  Serious: No
  Sender: FDA-Public Use
  Company Number: US-BRISTOL-MYERS SQUIBB COMPANY-18936948

PATIENT
  Age: 40 Year
  Sex: Male
  Weight: 117.91 kg

DRUGS (2)
  1. BYDUREON [Suspect]
     Indication: TYPE 2 DIABETES MELLITUS
     Dosage: NO OF INJECTIONS:3
  2. METFORMIN HCL TABS [Concomitant]

REACTIONS (1)
  - Injection site mass [Unknown]
